FAERS Safety Report 6300033-4 (Version None)
Quarter: 2009Q3

REPORT INFORMATION
  Report Type: 
  Country: None (occurrence: None)
  Receive Date: 20090806
  Receipt Date: 20090728
  Transmission Date: 20100115
  Serious: Yes (Hospitalization, Other)
  Sender: FDA-Public Use
  Company Number: AT-ELI_LILLY_AND_COMPANY-AT200907003033

PATIENT
  Age: 84 Year
  Sex: Male
  Weight: 60 kg

DRUGS (8)
  1. CYMBALTA [Suspect]
     Indication: PAIN
     Dosage: 60 MG, DAILY (1/D)
     Route: 048
     Dates: start: 20090501, end: 20090701
  2. HYDAL [Concomitant]
     Dosage: UNK, UNKNOWN
     Route: 065
  3. SEROQUEL [Concomitant]
     Dosage: 30 MG, DAILY (1/D)
     Route: 065
  4. SPIROBENE [Concomitant]
     Dosage: UNK, UNKNOWN
     Route: 065
  5. RAMIPRIL [Concomitant]
     Dosage: UNK, UNKNOWN
     Route: 065
  6. PANTOLOC /01263201/ [Concomitant]
     Dosage: UNK, UNKNOWN
     Route: 065
  7. VOLTAREN [Concomitant]
     Dosage: UNK, UNKNOWN
     Route: 065
  8. FOSAMAX [Concomitant]
     Dosage: UNK, UNKNOWN
     Route: 065

REACTIONS (3)
  - PNEUMONIA [None]
  - PSEUDOMEMBRANOUS COLITIS [None]
  - SEROTONIN SYNDROME [None]
